FAERS Safety Report 15885726 (Version 1)
Quarter: 2019Q1

REPORT INFORMATION
  Report Type: Spontaneous
  Country: FR (occurrence: FR)
  Receive Date: 20190129
  Receipt Date: 20190129
  Transmission Date: 20190417
  Serious: Yes (Hospitalization)
  Sender: FDA-Public Use
  Company Number: FR-TEVA-2019-FR-1004198

PATIENT
  Age: 59 Year
  Sex: Male
  Weight: 96 kg

DRUGS (9)
  1. AMLODIPINE [Concomitant]
     Active Substance: AMLODIPINE BESYLATE
     Dosage: 10 MILLIGRAM DAILY;
     Route: 048
  2. VENTOLINE [Concomitant]
     Active Substance: ALBUTEROL
  3. TAHOR [Concomitant]
     Active Substance: ATORVASTATIN CALCIUM
     Dosage: 1 DOSAGE FORMS DAILY;
     Route: 048
  4. HYDROCHLOROTHIAZIDE. [Suspect]
     Active Substance: HYDROCHLOROTHIAZIDE
     Indication: HYPERTENSION
     Dosage: 12.5 MILLIGRAM DAILY;
     Route: 048
     Dates: end: 20171128
  5. FORMOT?ROL (FUMARATE DE) DIHYDRAT? [Concomitant]
     Dosage: 2 DOSAGE FORMS DAILY;
     Route: 055
  6. LISINOPRIL DIHYDRATE [Suspect]
     Active Substance: LISINOPRIL
     Indication: HYPERTENSION
     Dosage: 20 MILLIGRAM DAILY;
     Route: 048
     Dates: end: 20171128
  7. MORPHINE [Concomitant]
     Active Substance: MORPHINE
  8. KARDEGIC [Concomitant]
     Active Substance: ASPIRIN DL-LYSINE
     Dosage: 160 MILLIGRAM DAILY;
     Route: 048
  9. BECLOMETHASONE (DIPROPIONATE DE) [Concomitant]
     Dosage: 2 DOSAGE FORMS DAILY;
     Route: 055

REACTIONS (3)
  - Swollen tongue [Recovered/Resolved]
  - Angioedema [Recovered/Resolved]
  - Weaning failure [Recovered/Resolved]

NARRATIVE: CASE EVENT DATE: 20171127
